FAERS Safety Report 5356468-X (Version None)
Quarter: 2007Q2

REPORT INFORMATION
  Report Type: 
  Country: None (occurrence: None)
  Receive Date: 20070530
  Receipt Date: 20070109
  Transmission Date: 20071010
  Serious: Yes (Hospitalization)
  Sender: FDA-Public Use
  Company Number: US200609003646

PATIENT
  Sex: Female
  Weight: 61.2 kg

DRUGS (1)
  1. ZYPREXA [Suspect]
     Dosage: 5 MG, 7.5 MG
     Dates: start: 20040101

REACTIONS (1)
  - COMA [None]
